FAERS Safety Report 21671573 (Version 1)
Quarter: 2022Q4

REPORT INFORMATION
  Report Type: Spontaneous
  Country: SE (occurrence: SE)
  Receive Date: 20221202
  Receipt Date: 20221202
  Transmission Date: 20230113
  Serious: Yes (Other)
  Sender: FDA-Public Use
  Company Number: None

PATIENT
  Age: 45 Year
  Sex: Female
  Weight: 90 kg

DRUGS (5)
  1. PREDNISOLONE [Suspect]
     Active Substance: PREDNISOLONE
     Indication: Rheumatoid arthritis
     Dosage: 1-3 TABLETS/DAY DEPENDING ON RELAPSES , FORM STRENGTH : 5 MG , DURATION : 964 DAYS
     Dates: start: 20190215, end: 20211006
  2. ORUDIS [Concomitant]
     Active Substance: KETOPROFEN
     Indication: Product used for unknown indication
     Dosage: 200 MILLIGRAM DAILY; 200 MG 1 TABLET/DAY , FORM STRENGTH : 200 MG
     Dates: start: 20190215
  3. METHOTREXATE SODIUM [Concomitant]
     Active Substance: METHOTREXATE SODIUM
     Indication: Product used for unknown indication
     Dosage: 25 MG 1 SYRINGE/WEEK , FORM STRENGTH : 25 MG LIQUID FOR INJECTION
     Dates: start: 20190215
  4. VALACIKLOVIR EBB [Concomitant]
     Indication: Product used for unknown indication
     Dosage: 250 MILLIGRAM DAILY; FORM STRENGTH : 250 MG , 250 MG 1 TABLET/DAY
     Dates: start: 2012
  5. OMEPRAZOLE [Concomitant]
     Active Substance: OMEPRAZOLE
     Indication: Product used for unknown indication
     Dosage: 20 MILLIGRAM DAILY; 20 MG 1 TABLET/DAY   , ENTERIC CAPSULE, HARD
     Dates: start: 20190215

REACTIONS (1)
  - Stress fracture [Not Recovered/Not Resolved]

NARRATIVE: CASE EVENT DATE: 20210907
